FAERS Safety Report 9501110 (Version 1)
Quarter: 2013Q3

REPORT INFORMATION
  Report Type: Spontaneous
  Country: GB (occurrence: GB)
  Receive Date: 20130905
  Receipt Date: 20130905
  Transmission Date: 20140515
  Serious: Yes (Other)
  Sender: FDA-Public Use
  Company Number: GB-MERCK-1309GBR001243

PATIENT
  Age: 57 Year
  Sex: Male

DRUGS (3)
  1. RIBAVIRIN [Suspect]
     Indication: HEPATITIS C
     Dosage: AS PER TREATMENT
     Route: 048
     Dates: start: 20121120
  2. PEGINTERFERON ALFA-2B [Suspect]
     Indication: HEPATITIS C
     Dosage: AS PER TREATMENT
     Route: 058
     Dates: start: 20121120
  3. TELAPREVIR [Suspect]
     Indication: HEPATITIS C
     Dosage: AS PER TREATMENT
     Route: 048
     Dates: start: 20121120, end: 2013

REACTIONS (4)
  - Headache [Unknown]
  - Nausea [Not Recovered/Not Resolved]
  - Malaise [Not Recovered/Not Resolved]
  - Hypersomnia [Not Recovered/Not Resolved]
